FAERS Safety Report 9252524 (Version 1)
Quarter: 2013Q1

REPORT INFORMATION
  Report Type: Spontaneous
  Country: US (occurrence: None)
  Receive Date: 20130305
  Receipt Date: 20130305
  Transmission Date: 20140127
  Serious: Yes (Other)
  Sender: FDA-Public Use
  Company Number: 163-21880-12052414

PATIENT
  Age: 79 Year
  Sex: Female
  Weight: 69.85 kg

DRUGS (16)
  1. REVLIMID [Suspect]
     Indication: PLASMA CELL MYELOMA
     Dosage: 10 MG, 21 IN 28 D, PO
     Route: 048
     Dates: start: 20120126
  2. MULTIVITAMIN (MULTIVITAMINS) (UNKNOWN) [Concomitant]
  3. PANTOPRAZOLE [Concomitant]
  4. MORPHINE (MORPHINE) (UNKNOWN) (MORPHINE) [Concomitant]
  5. DIOVAN (VALSARTAN) (UNKNOWN) [Concomitant]
  6. GABAPENTIN (GABAPENTIN) (UNKNOWN) (GABAPENTIN) [Concomitant]
  7. FLUDROCORTISONE (FLUDROCORTISONE) (UNKNOWN) [Concomitant]
  8. TIZANIDINE (TIZANIDINE) (UNKNOWN) [Concomitant]
  9. LEVOTHYROID (LEVOTHYROXINE SODIUM) (UNKNOWN) [Concomitant]
  10. ACIDOPHILUS (LACTOBACILLUS ACIDOPHILUS) (UNKNOWN) [Concomitant]
  11. POTASSIUM CHLORIDE (POTASSIUM CHLORIDE) (UNKNOWN) [Concomitant]
  12. MIRALAX (MACROGOL) (UNKNOWN) [Concomitant]
  13. VITAMIN B-12 (CYANOCOBALAMIN) (UNKNOWN) [Concomitant]
  14. VITAMIN D (ERGOCALCIFEROL) (UNKNOWN) [Concomitant]
  15. VIACTIV (CALCIUM) (UNKNOWN) [Concomitant]
  16. STOOL SOFTENER (DOCUSATE SODIUM) (UNKNOWN) [Concomitant]

REACTIONS (3)
  - Diarrhoea [None]
  - Skin discolouration [None]
  - Rash [None]
